FAERS Safety Report 10302316 (Version 3)
Quarter: 2014Q3

REPORT INFORMATION
  Report Type: Spontaneous
  Country: US (occurrence: US)
  Receive Date: 20140714
  Receipt Date: 20140821
  Transmission Date: 20150326
  Serious: Yes (Hospitalization, Other)
  Sender: FDA-Public Use
  Company Number: US-GILEAD-2014-0108455

PATIENT
  Age: 68 Year
  Sex: Male

DRUGS (1)
  1. LETAIRIS [Suspect]
     Active Substance: AMBRISENTAN
     Indication: PRODUCT USED FOR UNKNOWN INDICATION
     Dosage: 10 MG, QD
     Route: 065
     Dates: start: 20131206

REACTIONS (5)
  - Hypoaesthesia [Unknown]
  - Cerebrovascular accident [Unknown]
  - Hemiplegia [Unknown]
  - Transient ischaemic attack [Unknown]
  - Speech disorder [Unknown]

NARRATIVE: CASE EVENT DATE: 20140708
